FAERS Safety Report 4574064-9 (Version None)
Quarter: 2005Q1

REPORT INFORMATION
  Report Type: 
  Country: None (occurrence: None)
  Receive Date: 20050204
  Receipt Date: 20050125
  Transmission Date: 20050727
  Serious: Yes (Hospitalization, Other)
  Sender: FDA-Public Use
  Company Number: 001-0073-M0000433

PATIENT
  Sex: Female
  Weight: 60.3284 kg

DRUGS (10)
  1. DILANTIN [Suspect]
     Indication: CONVULSION
     Dosage: 200 MG (100 MG, 2 IN 1 D), ORAL
     Route: 048
     Dates: start: 19750101
  2. CALCIUM (CALCIUM) [Concomitant]
  3. CONJUGATED ESTROGENS [Concomitant]
  4. LEVOTHYROXINE SODIUM [Concomitant]
  5. GABAPENTIN [Concomitant]
  6. PHENOBARBITAL TAB [Concomitant]
  7. ALL OTHER THERAPEUTIC PRODUCTS (ALL OTHER THERAPEUTIC PRODUCTS) [Concomitant]
  8. ACETAMINOPHEN [Concomitant]
  9. ALENDRONATE SODIUM [Concomitant]
  10. PANTOPRAZOLE (PANTOPRAZOLE) [Concomitant]

REACTIONS (18)
  - ANEURYSM [None]
  - ANKLE FRACTURE [None]
  - BONE DISORDER [None]
  - CARDIOVASCULAR DISORDER [None]
  - CONDITION AGGRAVATED [None]
  - DISEASE RECURRENCE [None]
  - FOOT FRACTURE [None]
  - HEADACHE [None]
  - HUMERUS FRACTURE [None]
  - ODYNOPHAGIA [None]
  - OEDEMA PERIPHERAL [None]
  - OSTEOGENESIS IMPERFECTA [None]
  - PAIN [None]
  - PULMONARY OEDEMA [None]
  - TOOTH DISORDER [None]
  - UPPER LIMB FRACTURE [None]
  - WEIGHT DECREASED [None]
  - WRIST FRACTURE [None]
